FAERS Safety Report 6055995-X (Version None)
Quarter: 2009Q1

REPORT INFORMATION
  Report Type: 
  Country: None (occurrence: None)
  Receive Date: 20090126
  Receipt Date: 20081029
  Transmission Date: 20090719
  Serious: Yes (Hospitalization, Other)
  Sender: FDA-Public Use
  Company Number: 2008AP002942

PATIENT
  Age: 39 Year
  Sex: Female

DRUGS (4)
  1. CIPROFLOXACIN HYDROCHLORIDE [Suspect]
     Indication: ABSCESS
     Dosage: 500 MG; BID PO
     Route: 048
  2. CIPROFLOXACIN HYDROCHLORIDE [Suspect]
     Indication: DIVERTICULUM
     Dosage: 500 MG; BID PO
     Route: 048
  3. METRONIDAZOLE [Suspect]
     Indication: ABSCESS
     Dosage: 500 MG; TID PO
     Route: 048
  4. METRONIDAZOLE [Suspect]
     Indication: DIVERTICULUM
     Dosage: 500 MG; TID PO
     Route: 048

REACTIONS (11)
  - ABDOMINAL PAIN UPPER [None]
  - ANOREXIA [None]
  - HEPATIC NECROSIS [None]
  - HEPATITIS [None]
  - HEPATOTOXICITY [None]
  - INTERNATIONAL NORMALISED RATIO INCREASED [None]
  - LYMPHADENOPATHY [None]
  - NAUSEA [None]
  - RENAL LIPOMATOSIS [None]
  - SPLENOMEGALY [None]
  - VOMITING [None]
